FAERS Safety Report 10708911 (Version 1)
Quarter: 2015Q1

REPORT INFORMATION
  Report Type: Spontaneous
  Country: US (occurrence: US)
  Receive Date: 20150114
  Receipt Date: 20150114
  Transmission Date: 20150721
  Serious: Yes (Death)
  Sender: FDA-Public Use
  Company Number: US-ASTRAZENECA-2015SE01394

PATIENT
  Age: 19 Year
  Sex: Female

DRUGS (10)
  1. IBUPROFEN. [Suspect]
     Active Substance: IBUPROFEN
     Route: 048
  2. ZOLPIDEM [Suspect]
     Active Substance: ZOLPIDEM\ZOLPIDEM TARTRATE
     Route: 048
  3. HYDROXYZINE [Suspect]
     Active Substance: HYDROXYZINE\HYDROXYZINE HYDROCHLORIDE
     Route: 048
  4. BENZONATATE. [Suspect]
     Active Substance: BENZONATATE
     Route: 048
  5. QUETIAPINE [Suspect]
     Active Substance: QUETIAPINE
     Route: 048
  6. NAPROXEN. [Suspect]
     Active Substance: NAPROXEN
     Route: 048
  7. WARFARIN [Suspect]
     Active Substance: WARFARIN
     Route: 048
  8. NABUMETONE. [Suspect]
     Active Substance: NABUMETONE
     Route: 048
  9. ACETAMINOPHEN. [Suspect]
     Active Substance: ACETAMINOPHEN
     Route: 048
  10. ACETAMINOPHEN/HYDROCODONE [Suspect]
     Active Substance: ACETAMINOPHEN\HYDROCODONE
     Route: 048

REACTIONS (3)
  - Toxicity to various agents [Fatal]
  - Completed suicide [Fatal]
  - Cardio-respiratory arrest [Fatal]
